FAERS Safety Report 9356393 (Version 1)
Quarter: 2013Q2

REPORT INFORMATION
  Report Type: Spontaneous
  Country: US (occurrence: None)
  Receive Date: 20130614
  Receipt Date: 20130614
  Transmission Date: 20140414
  Serious: Yes (Hospitalization, Other)
  Sender: FDA-Public Use
  Company Number: 2013P1007044

PATIENT
  Age: 31 Year
  Sex: Female

DRUGS (2)
  1. PHENTERMINE [Suspect]
     Indication: OBESITY
     Route: 048
  2. PHENDIMETRAZINE [Suspect]
     Indication: OBESITY
     Route: 048

REACTIONS (4)
  - Pulmonary embolism [None]
  - Pulmonary infarction [None]
  - Pleural effusion [None]
  - Pneumothorax [None]
